FAERS Safety Report 15651712 (Version 2)
Quarter: 2018Q4

REPORT INFORMATION
  Report Type: Spontaneous
  Country: KR (occurrence: KR)
  Receive Date: 20181123
  Receipt Date: 20181126
  Transmission Date: 20190205
  Serious: Yes (Death, Other)
  Sender: FDA-Public Use
  Company Number: KR-009507513-1811KOR008109

PATIENT
  Sex: Male

DRUGS (6)
  1. KEYTRUDA [Suspect]
     Active Substance: PEMBROLIZUMAB
     Indication: LUNG ADENOCARCINOMA
     Dosage: QUANTITY 2; DAYS 1
     Dates: start: 20180913, end: 20180913
  2. HEPARIN SODIUM. [Concomitant]
     Active Substance: HEPARIN SODIUM
     Dosage: QUANTITY 1; DAYS 1
     Dates: start: 20180903, end: 20180903
  3. ZINCTRACE (ZINC CHLORIDE) [Concomitant]
     Dosage: QUANTITY 1; DAYS 27
     Dates: start: 20180919, end: 20181015
  4. HEPARIN SODIUM. [Concomitant]
     Active Substance: HEPARIN SODIUM
     Dosage: UNK
     Dates: start: 20181008, end: 20181008
  5. ALBUMIN HUMAN [Concomitant]
     Active Substance: ALBUMIN HUMAN
     Dosage: QUANTITY 1; DAYS 1
     Dates: start: 20180917, end: 20180917
  6. DENOGAN [Concomitant]
     Active Substance: PROPACETAMOL HYDROCHLORIDE
     Dosage: QUANTITY 1; DAYS 4
     Dates: start: 20180824, end: 20180930

REACTIONS (2)
  - Malignant neoplasm progression [Fatal]
  - Pneumonia [Fatal]

NARRATIVE: CASE EVENT DATE: 2018
